FAERS Safety Report 18916449 (Version 1)
Quarter: 2021Q1

REPORT INFORMATION
  Report Type: Other
  Country: IT (occurrence: IT)
  Receive Date: 20210219
  Receipt Date: 20210219
  Transmission Date: 20210420
  Serious: Yes (Other)
  Sender: FDA-Public Use
  Company Number: IT-GALEN LIMITED-AE-2021-0071

PATIENT
  Sex: Female

DRUGS (2)
  1. DAUNORUBICIN [Suspect]
     Active Substance: DAUNORUBICIN
     Dosage: UNKNOWN
     Route: 064
  2. CYTARABINE. [Suspect]
     Active Substance: CYTARABINE
     Route: 064

REACTIONS (3)
  - Foetal exposure during pregnancy [Recovered/Resolved]
  - Neonatal respiratory distress syndrome [Unknown]
  - Neutropenia [Recovered/Resolved]
